FAERS Safety Report 7003675-6 (Version None)
Quarter: 2010Q3

REPORT INFORMATION
  Report Type: 
  Country: None (occurrence: None)
  Receive Date: 20100920
  Receipt Date: 20090521
  Transmission Date: 20110219
  Serious: No
  Sender: FDA-Public Use
  Company Number: US-WYE-H09464609

PATIENT
  Sex: Female
  Weight: 49.94 kg

DRUGS (3)
  1. PROTONIX [Suspect]
     Indication: OESOPHAGITIS
     Route: 048
     Dates: start: 20090519
  2. CENTRUM [Concomitant]
  3. SINGULAIR [Concomitant]

REACTIONS (2)
  - DRUG INEFFECTIVE [None]
  - FAECES PALE [None]
